FAERS Safety Report 14581740 (Version 1)
Quarter: 2018Q1

REPORT INFORMATION
  Report Type: Spontaneous
  Country: US (occurrence: US)
  Receive Date: 20180227
  Receipt Date: 20180227
  Transmission Date: 20180509
  Serious: Yes (Disabling)
  Sender: FDA-Public Use
  Company Number: None

PATIENT
  Age: 52 Year
  Sex: Female
  Weight: 54 kg

DRUGS (2)
  1. OPTIMARK [Suspect]
     Active Substance: GADOVERSETAMIDE
     Indication: NUCLEAR MAGNETIC RESONANCE IMAGING
     Route: 030
     Dates: start: 20180129, end: 20180129
  2. NATURTHROID [Concomitant]

REACTIONS (11)
  - Night sweats [None]
  - Gait inability [None]
  - Neuralgia [None]
  - Swelling [None]
  - Muscle atrophy [None]
  - Eye pain [None]
  - Muscle twitching [None]
  - Arthralgia [None]
  - Bone pain [None]
  - Headache [None]
  - Alopecia [None]

NARRATIVE: CASE EVENT DATE: 20180129
